FAERS Safety Report 5607674-8 (Version None)
Quarter: 2008Q1

REPORT INFORMATION
  Report Type: 
  Country: None (occurrence: None)
  Receive Date: 20080128
  Receipt Date: 20080128
  Transmission Date: 20080703
  Serious: No
  Sender: FDA-Public Use
  Company Number: None

PATIENT
  Age: 65 Year
  Sex: Female
  Weight: 63.5036 kg

DRUGS (1)
  1. ZETIA [Suspect]
     Indication: BLOOD CHOLESTEROL INCREASED
     Dosage: 1 TABLET EVERY EVENING PO
     Route: 048
     Dates: start: 20060401, end: 20070301

REACTIONS (4)
  - ASTHENIA [None]
  - FATIGUE [None]
  - PAIN IN EXTREMITY [None]
  - SLEEP DISORDER [None]
